FAERS Safety Report 9601323 (Version 1)
Quarter: 2013Q4

REPORT INFORMATION
  Report Type: Report from Study
  Country: US (occurrence: US)
  Receive Date: 20131007
  Receipt Date: 20131007
  Transmission Date: 20140711
  Serious: Yes (Other)
  Sender: FDA-Public Use
  Company Number: US-ROCHE-1283062

PATIENT
  Sex: 0

DRUGS (12)
  1. RIBAVIRIN [Suspect]
     Indication: HEPATITIS C
     Dosage: FOR 48 WEEKS
     Route: 065
  2. PEG-INTERFERON ALFA 2A [Interacting]
     Indication: HEPATITIS C
     Route: 065
  3. PEGINTERFERON ALFA-2B [Interacting]
     Indication: HEPATITIS C
     Route: 065
  4. ALBINTERFERON ALFA-2B [Interacting]
     Indication: HEPATITIS C
     Route: 065
  5. TENOFOVIR [Interacting]
     Indication: HIV INFECTION
     Route: 065
  6. STAVUDINE [Concomitant]
  7. DIDANOSINE [Concomitant]
  8. EMTRICITABINE [Concomitant]
  9. ZIDOVUDINE [Concomitant]
  10. ATAZANAVIR [Concomitant]
  11. LOPINAVIR [Concomitant]
  12. EFAVIRENZ [Concomitant]

REACTIONS (2)
  - Hypophosphataemia [Unknown]
  - Proteinuria [Unknown]
